FAERS Safety Report 15895265 (Version 3)
Quarter: 2019Q2

REPORT INFORMATION
  Report Type: Report from Study
  Country: JP (occurrence: JP)
  Receive Date: 20190131
  Receipt Date: 20190404
  Transmission Date: 20190711
  Serious: Yes (Death, Life-Threatening, Hospitalization, Other)
  Sender: FDA-Public Use
  Company Number: JP-SA-2019SA023981

PATIENT
  Age: 53 Year
  Sex: Female
  Weight: 46 kg

DRUGS (26)
  1. VANDETANIB. [Suspect]
     Active Substance: VANDETANIB
     Indication: MEDULLARY THYROID CANCER
     Dosage: DAILY DOSE: 200 MG
     Route: 048
     Dates: start: 20171222, end: 20180218
  2. POTASSIUM IODIDE. [Concomitant]
     Active Substance: POTASSIUM IODIDE
     Indication: BASEDOW^S DISEASE
     Dosage: 1 PILL/DAY
     Route: 048
  3. OXINORM [ASCORBIC ACID;BETACAROTENE;COPPER;GLYCINE MAX EXTRACT;SELENIU [Concomitant]
     Indication: BACK PAIN
  4. LOXONIN [Concomitant]
     Active Substance: LOXOPROFEN SODIUM
     Indication: BACK PAIN
     Dosage: UNK
     Route: 048
     Dates: start: 20180210
  5. CODEINE PHOSPHATE [Concomitant]
     Active Substance: CODEINE PHOSPHATE
     Indication: DIARRHOEA
     Dosage: 60 MG/DAY, SELF-MAKING
     Route: 048
  6. TAKEPRON [Concomitant]
     Active Substance: LANSOPRAZOLE
     Indication: PROPHYLAXIS
     Dosage: 30 MG/DAY
     Route: 048
     Dates: start: 20170316, end: 20180320
  7. PREDNISOLONE. [Concomitant]
     Active Substance: PREDNISOLONE
     Indication: PROPHYLAXIS
     Dosage: 10 MG/DAY
     Route: 048
     Dates: start: 20171222, end: 20180326
  8. PREDNISOLONE. [Concomitant]
     Active Substance: PREDNISOLONE
     Indication: PROPHYLAXIS
  9. VANDETANIB. [Suspect]
     Active Substance: VANDETANIB
     Dosage: DAILY DOSE: 100 MG
     Route: 048
     Dates: start: 20180219, end: 20180223
  10. VANDETANIB. [Suspect]
     Active Substance: VANDETANIB
     Dosage: DAILY DOSE: 300 MG
     Route: 048
     Dates: start: 20170314, end: 20171221
  11. OXYCONTIN [Concomitant]
     Active Substance: OXYCODONE HYDROCHLORIDE
     Indication: BACK PAIN
  12. HIRUDOID [Concomitant]
     Active Substance: GLYCOSAMINOGLYCANS
     Indication: PROPHYLAXIS
     Dosage: 50 G/TUBE, TOPICAL
     Route: 065
     Dates: start: 20170111, end: 20180224
  13. OXINORM [ASCORBIC ACID;BETACAROTENE;COPPER;GLYCINE MAX EXTRACT;SELENIU [Concomitant]
     Indication: BACK PAIN
  14. FLOMOX [CEFCAPENE PIVOXIL HYDROCHLORIDE] [Concomitant]
     Active Substance: CEFCAPENE PIVOXIL HYDROCHLORIDE
     Indication: LOCALISED INFECTION
     Dosage: UNK
     Route: 048
     Dates: start: 20180221, end: 20180222
  15. IRRIBOW [Concomitant]
     Active Substance: RAMOSETRON HYDROCHLORIDE
     Indication: DIARRHOEA
     Dosage: 2.5 ?G/DAY
     Route: 048
     Dates: start: 20170124, end: 20180324
  16. IRRIBOW [Concomitant]
     Active Substance: RAMOSETRON HYDROCHLORIDE
     Indication: MEDULLARY THYROID CANCER
  17. OXINORM [ASCORBIC ACID;BETACAROTENE;COPPER;GLYCINE MAX EXTRACT;SELENIU [Concomitant]
     Indication: MUSCULAR WEAKNESS
     Dosage: 2.5 MG//DAY, PRN
     Route: 048
     Dates: start: 20180221, end: 20180320
  18. AMPHOTERICIN B/TETRACYCLINE [Suspect]
     Active Substance: AMPHOTERICIN B\TETRACYCLINE
     Indication: MEDULLARY THYROID CANCER
     Route: 065
  19. MAINTATE [Concomitant]
     Active Substance: BISOPROLOL FUMARATE
     Indication: BASEDOW^S DISEASE
     Dosage: 1.25 MG/DAY
     Route: 048
     Dates: start: 20170911, end: 20171229
  20. URSO [Concomitant]
     Active Substance: URSODIOL
     Indication: METASTASES TO LIVER
     Dosage: 150 MG/DAY
     Route: 048
     Dates: start: 20170130
  21. LOPEMIN [LOPERAMIDE HYDROCHLORIDE] [Concomitant]
     Indication: DIARRHOEA
     Dosage: 3 MG/DAY, PRN
     Route: 048
  22. MIYA-BM [Concomitant]
     Active Substance: CLOSTRIDIUM BUTYRICUM SPORES STRAIN M-55
     Indication: DIARRHOEA
     Dosage: 3 TABLETS/DAY, PRN
     Route: 048
  23. PASTARON [Concomitant]
     Active Substance: UREA
     Indication: PROPHYLAXIS
     Dosage: 25 G/TUBE, TOPICAL
     Route: 065
     Dates: start: 20170111, end: 20180224
  24. UREPEARL [Concomitant]
     Active Substance: UREA
     Indication: PROPHYLAXIS
     Dosage: TOPICAL
     Route: 065
  25. OXYCONTIN [Concomitant]
     Active Substance: OXYCODONE HYDROCHLORIDE
     Indication: BACK PAIN
  26. OXYCONTIN [Concomitant]
     Active Substance: OXYCODONE HYDROCHLORIDE
     Indication: MUSCULAR WEAKNESS
     Dosage: 5-10 MG/DAY
     Route: 048
     Dates: start: 20180221, end: 20180320

REACTIONS (3)
  - Interstitial lung disease [Recovering/Resolving]
  - Oedema peripheral [Recovering/Resolving]
  - Acne [Unknown]

NARRATIVE: CASE EVENT DATE: 20180127
